FAERS Safety Report 6049138-6 (Version None)
Quarter: 2009Q1

REPORT INFORMATION
  Report Type: 
  Country: None (occurrence: None)
  Receive Date: 20090123
  Receipt Date: 20080402
  Transmission Date: 20090719
  Serious: Yes (Hospitalization)
  Sender: FDA-Public Use
  Company Number: US-ABBOTT-08P-163-0445240-00

PATIENT
  Age: 42 Year
  Sex: Female

DRUGS (5)
  1. DEPACON [Suspect]
     Indication: CONVULSION
     Route: 042
     Dates: start: 20080301, end: 20080301
  2. DEPACON [Suspect]
     Dosage: INCREASE DOSE TO CONTROL SEIZURES
     Route: 042
     Dates: start: 20080301
  3. DEPAKENE [Suspect]
     Indication: CONVULSION
  4. TOPIRAMATE [Concomitant]
     Indication: CONVULSION
     Route: 048
  5. TERGETOL [Concomitant]
     Indication: CONVULSION
     Route: 048

REACTIONS (5)
  - AMMONIA INCREASED [None]
  - COMA [None]
  - GRAND MAL CONVULSION [None]
  - METABOLIC ACIDOSIS [None]
  - RENAL IMPAIRMENT [None]
